FAERS Safety Report 6696479-5 (Version None)
Quarter: 2010Q2

REPORT INFORMATION
  Report Type: 
  Country: None (occurrence: None)
  Receive Date: 20100426
  Receipt Date: 20100416
  Transmission Date: 20101027
  Serious: Yes (Hospitalization)
  Sender: FDA-Public Use
  Company Number: ES-ABBOTT-10P-144-0639144-00

PATIENT
  Age: 53 Year
  Sex: Female

DRUGS (5)
  1. DEPAKENE [Suspect]
     Indication: DRUG USE FOR UNKNOWN INDICATION
     Route: 048
     Dates: start: 20100202
  2. DEPAKENE [Interacting]
     Dosage: 1000 MG DAILY
     Dates: start: 20100101, end: 20100202
  3. CLONAZEPAM [Interacting]
     Indication: DRUG USE FOR UNKNOWN INDICATION
     Route: 048
     Dates: start: 20100128, end: 20100201
  4. RISPERDAL [Interacting]
     Indication: PSYCHOTIC DISORDER
     Route: 048
     Dates: start: 20100202, end: 20100210
  5. OLANZAPINE [Concomitant]
     Indication: DRUG USE FOR UNKNOWN INDICATION
     Dates: start: 20100128, end: 20100202

REACTIONS (2)
  - DRUG INTERACTION [None]
  - SOMNOLENCE [None]
